FAERS Safety Report 23232036 (Version 1)
Quarter: 2023Q4

REPORT INFORMATION
  Report Type: Spontaneous
  Country: US (occurrence: US)
  Receive Date: 20231127
  Receipt Date: 20231127
  Transmission Date: 20240110
  Serious: No
  Sender: FDA-Public Use
  Company Number: US-UPSHER-SMITH LABORATORIES, LLC-2023USL00138

PATIENT
  Age: 44 Year
  Sex: Female
  Weight: 95.238 kg

DRUGS (8)
  1. KLOR-CON [Suspect]
     Active Substance: POTASSIUM CHLORIDE
     Indication: Primary hyperaldosteronism
     Dosage: 20 MEQ, 2X/DAY
     Route: 048
     Dates: end: 20230202
  2. KLOR-CON [Suspect]
     Active Substance: POTASSIUM CHLORIDE
     Dosage: 20 MEQ, 2X/DAY
     Route: 048
     Dates: start: 2023, end: 2023
  3. KLOR-CON [Suspect]
     Active Substance: POTASSIUM CHLORIDE
     Dosage: 20 MEQ, 2X/DAY
     Route: 048
     Dates: start: 2023, end: 2023
  4. KLOR-CON [Suspect]
     Active Substance: POTASSIUM CHLORIDE
     Dosage: 20 MEQ, 2X/DAY
     Route: 048
     Dates: start: 2023, end: 202302
  5. KLOR-CON [Suspect]
     Active Substance: POTASSIUM CHLORIDE
     Dosage: 20 MEQ, 2X/DAY
     Route: 048
     Dates: start: 202302, end: 202302
  6. KLOR-CON [Suspect]
     Active Substance: POTASSIUM CHLORIDE
     Dosage: 20 MEQ, 2X/DAY
     Route: 048
     Dates: start: 202302
  7. TYLENOL [Concomitant]
     Active Substance: ACETAMINOPHEN
  8. UNSPECIFIED INGREDIENT [Concomitant]
     Active Substance: UNSPECIFIED INGREDIENT

REACTIONS (2)
  - Therapeutic product effect decreased [Recovered/Resolved]
  - Expired product administered [Recovered/Resolved]

NARRATIVE: CASE EVENT DATE: 20230101
